FAERS Safety Report 9227340 (Version 1)
Quarter: 2013Q1

REPORT INFORMATION
  Report Type: Spontaneous
  Country: US (occurrence: None)
  Receive Date: 20121012
  Receipt Date: 20121012
  Transmission Date: 20140127
  Serious: Yes (Hospitalization)
  Sender: FDA-Public Use
  Company Number: 1000025511

PATIENT
  Age: 61 Year
  Sex: Female

DRUGS (1)
  1. LEXAPRO (ESCITALOPRAM OXALATE) 20 MILLIGRAM, TABLEETS) [Suspect]
     Indication: ANXIETY
     Dosage: 20MG (20MG,  1 IN 1 D), ORAL
     Route: 048
     Dates: start: 20111025, end: 20111105

REACTIONS (5)
  - Ataxia [None]
  - Vertigo [None]
  - Panic attack [None]
  - Hallucination [None]
  - Insomnia [None]
